FAERS Safety Report 5988511-9 (Version None)
Quarter: 2008Q4

REPORT INFORMATION
  Report Type: 
  Country: None (occurrence: None)
  Receive Date: 20081208
  Receipt Date: 20081208
  Transmission Date: 20090506
  Serious: Yes (Life-Threatening, Hospitalization, Disabling, Other)
  Sender: FDA-Public Use
  Company Number: None

PATIENT
  Age: 54 Year
  Sex: Male
  Weight: 122.4712 kg

DRUGS (1)
  1. PROVIGIL [Suspect]

REACTIONS (3)
  - DELUSION [None]
  - ORGAN FAILURE [None]
  - RASH [None]
